FAERS Safety Report 8381844-0 (Version None)
Quarter: 2012Q2

REPORT INFORMATION
  Report Type: 
  Country: None (occurrence: None)
  Receive Date: 20120523
  Receipt Date: 20120523
  Transmission Date: 20120825
  Serious: Yes (Hospitalization)
  Sender: FDA-Public Use
  Company Number: None

PATIENT
  Age: 60 Year
  Sex: Male
  Weight: 100.2 kg

DRUGS (1)
  1. MIRTAZAPINE [Suspect]
     Indication: DEPRESSION
     Dosage: 30 MG HS PO
     Route: 048
     Dates: start: 20101027, end: 20120127

REACTIONS (2)
  - HEPATIC ENZYME INCREASED [None]
  - HEPATOTOXICITY [None]
